FAERS Safety Report 8620414-3 (Version None)
Quarter: 2012Q3

REPORT INFORMATION
  Report Type: 
  Country: None (occurrence: None)
  Receive Date: 20120824
  Receipt Date: 20120816
  Transmission Date: 20120928
  Serious: Yes (Hospitalization)
  Sender: FDA-Public Use
  Company Number: FR-GLAXOSMITHKLINE-B0823128A

PATIENT
  Sex: Male

DRUGS (3)
  1. CLOBAZAM [Concomitant]
     Indication: EPILEPSY
     Route: 065
     Dates: start: 20120428
  2. LAMICTAL [Suspect]
     Indication: EPILEPSY
     Route: 048
     Dates: start: 20120428, end: 20120509
  3. KEPPRA [Concomitant]
     Indication: EPILEPSY
     Route: 065
     Dates: start: 20110301, end: 20120401

REACTIONS (6)
  - CHILLS [None]
  - RASH MACULAR [None]
  - PYREXIA [None]
  - TRANSAMINASES INCREASED [None]
  - MUSCULOSKELETAL STIFFNESS [None]
  - INCORRECT DOSE ADMINISTERED [None]
